FAERS Safety Report 15173304 (Version 1)
Quarter: 2018Q3

REPORT INFORMATION
  Report Type: Report from Study
  Country: US (occurrence: US)
  Receive Date: 20180720
  Receipt Date: 20180720
  Transmission Date: 20181010
  Serious: Yes (Hospitalization)
  Sender: FDA-Public Use
  Company Number: US-BAYER-2018-110035

PATIENT
  Age: 56 Year
  Sex: Female

DRUGS (1)
  1. STIVARGA [Suspect]
     Active Substance: REGORAFENIB
     Indication: COLORECTAL CANCER
     Dosage: 160 MG DAILY
     Route: 048
     Dates: start: 20180531

REACTIONS (9)
  - Hospitalisation [None]
  - Cough [None]
  - Dry mouth [Not Recovered/Not Resolved]
  - Odynophagia [Recovering/Resolving]
  - Pyrexia [None]
  - Urinary tract infection [None]
  - Exercise tolerance decreased [None]
  - Fatigue [Not Recovered/Not Resolved]
  - Oral pain [Recovering/Resolving]

NARRATIVE: CASE EVENT DATE: 2018
